FAERS Safety Report 6100871-7 (Version None)
Quarter: 2009Q1

REPORT INFORMATION
  Report Type: 
  Country: None (occurrence: None)
  Receive Date: 20090304
  Receipt Date: 20090225
  Transmission Date: 20090719
  Serious: Yes (Hospitalization, Other)
  Sender: FDA-Public Use
  Company Number: PHHY2009JP06840

PATIENT
  Age: 62 Year
  Sex: Male

DRUGS (2)
  1. TEGRETOL [Suspect]
     Indication: SCHIZOPHRENIA
  2. LIMAS [Suspect]
     Indication: SCHIZOPHRENIA

REACTIONS (1)
  - SICK SINUS SYNDROME [None]
